FAERS Safety Report 9334420 (Version 1)
Quarter: 2013Q2

REPORT INFORMATION
  Report Type: Spontaneous
  Country: US (occurrence: US)
  Receive Date: 20130606
  Receipt Date: 20130606
  Transmission Date: 20140414
  Serious: No
  Sender: FDA-Public Use
  Company Number: US-ASTRAZENECA-2013SE40530

PATIENT
  Sex: Female

DRUGS (2)
  1. SYMBICORT [Suspect]
     Dosage: UNKNOWN DOSE AND FREQUENCY
     Route: 055
  2. OTHER MEDICATIONS [Concomitant]

REACTIONS (3)
  - Emphysema [Unknown]
  - Chronic obstructive pulmonary disease [Unknown]
  - Intentional drug misuse [Unknown]
